FAERS Safety Report 12378645 (Version 2)
Quarter: 2016Q2

REPORT INFORMATION
  Report Type: Spontaneous
  Country: US (occurrence: US)
  Receive Date: 20160517
  Receipt Date: 20160518
  Transmission Date: 20160815
  Serious: Yes (Hospitalization)
  Sender: FDA-Public Use
  Company Number: US-CELGENEUS-USA-2016051882

PATIENT
  Age: 75 Year
  Sex: Male
  Weight: 80.45 kg

DRUGS (1)
  1. POMALYST [Suspect]
     Active Substance: POMALIDOMIDE
     Indication: PLASMA CELL MYELOMA
     Dosage: 2 MILLIGRAM
     Route: 048
     Dates: start: 20160420, end: 2016

REACTIONS (6)
  - Upper airway obstruction [Not Recovered/Not Resolved]
  - Bacteraemia [Not Recovered/Not Resolved]
  - Angioedema [Not Recovered/Not Resolved]
  - Klebsiella sepsis [Not Recovered/Not Resolved]
  - Acute respiratory failure [Not Recovered/Not Resolved]
  - Urinary tract infection [Not Recovered/Not Resolved]

NARRATIVE: CASE EVENT DATE: 20160428
